FAERS Safety Report 11799356 (Version 5)
Quarter: 2020Q1

REPORT INFORMATION
  Report Type: Report from Study
  Country: US (occurrence: US)
  Receive Date: 20151203
  Receipt Date: 20200310
  Transmission Date: 20200409
  Serious: Yes (Hospitalization, Other)
  Sender: FDA-Public Use
  Company Number: US-AMGEN-USASL2015119521

PATIENT
  Age: 58 Year
  Sex: Female

DRUGS (3)
  1. REPATHA [Suspect]
     Active Substance: EVOLOCUMAB
     Indication: HYPERCHOLESTEROLAEMIA
     Dosage: 140 MILLIGRAM PER MILLILITRE, EVERY TWO WEEKS AND 6 DAYS
     Route: 065
  2. REPATHA [Suspect]
     Active Substance: EVOLOCUMAB
     Indication: ARTERIOSCLEROSIS
     Dosage: 140 MILLIGRAM PER MILLILITRE, Q2WK
     Route: 065
     Dates: start: 2016
  3. CRESTOR [Concomitant]
     Active Substance: ROSUVASTATIN CALCIUM
     Dosage: UNK
     Route: 065

REACTIONS (19)
  - Asthenia [Unknown]
  - Injection site mass [Recovered/Resolved]
  - Antiphospholipid syndrome [Unknown]
  - Anaemia [Unknown]
  - Injection site swelling [Not Recovered/Not Resolved]
  - Lymphadenopathy [Unknown]
  - Nasopharyngitis [Unknown]
  - Back pain [Unknown]
  - Nervousness [Unknown]
  - Injection site bruising [Unknown]
  - Pruritus [Unknown]
  - Haemorrhage [Unknown]
  - Fatigue [Unknown]
  - Headache [Unknown]
  - Mood swings [Unknown]
  - Oropharyngeal pain [Unknown]
  - Injection site pain [Not Recovered/Not Resolved]
  - Myalgia [Unknown]
  - Feeling abnormal [Unknown]
